FAERS Safety Report 6235047-6 (Version None)
Quarter: 2009Q2

REPORT INFORMATION
  Report Type: 
  Country: None (occurrence: None)
  Receive Date: 20090617
  Receipt Date: 20071031
  Transmission Date: 20091009
  Serious: No
  Sender: FDA-Public Use
  Company Number: 268949

PATIENT
  Age: 67 Year
  Sex: Female

DRUGS (5)
  1. LEVEMIR [Suspect]
     Indication: INSULIN-REQUIRING TYPE 2 DIABETES MELLITUS
     Dosage: UNK UNK SUBCUTANEOUS
     Route: 058
  2. NOVOFINE 30 (NEEDLE) [Concomitant]
  3. ZETIA [Concomitant]
  4. PRAVASTATIN [Concomitant]
  5. LISINOPRIL HCL (HYDROCHLOROTHIAZIDE, LISINOPRIL) [Concomitant]

REACTIONS (2)
  - CONTUSION [None]
  - SWELLING [None]
